FAERS Safety Report 4288900-7 (Version None)
Quarter: 2004Q1

REPORT INFORMATION
  Report Type: 
  Country: None (occurrence: None)
  Receive Date: 20040206
  Receipt Date: 20040127
  Transmission Date: 20041129
  Serious: Yes (Death, Other)
  Sender: FDA-Public Use
  Company Number: 200401250

PATIENT

DRUGS (2)
  1. TYLENOL ANALGESIC [Suspect]
  2. ALCOHOL [Suspect]

REACTIONS (1)
  - OVERDOSE [None]
